FAERS Safety Report 6833590-X (Version None)
Quarter: 2010Q3

REPORT INFORMATION
  Report Type: 
  Country: None (occurrence: None)
  Receive Date: 20100712
  Receipt Date: 20100629
  Transmission Date: 20110219
  Serious: Yes (Hospitalization, Other)
  Sender: FDA-Public Use
  Company Number: US-ELI_LILLY_AND_COMPANY-US201006008019

PATIENT
  Sex: Male
  Weight: 112.93 kg

DRUGS (23)
  1. PROZAC [Suspect]
     Dosage: 60 MG, DAILY (1/D)
     Route: 048
  2. PROZAC [Suspect]
     Dosage: 1 D/F, WEEKLY (1/W)
     Route: 065
  3. CHANTIX [Concomitant]
     Indication: SMOKING CESSATION THERAPY
     Dosage: 5 MG, DAILY (1/D)
     Dates: start: 20061010, end: 20061011
  4. CHANTIX [Concomitant]
     Dosage: 1 MG, 2/D
  5. CELEBREX [Concomitant]
  6. OXCARBAZEPINE [Concomitant]
  7. MONTELUKAST SODIUM [Concomitant]
  8. LISINOPRIL [Concomitant]
     Indication: BLOOD PRESSURE
     Dosage: 10 MG, UNKNOWN
     Route: 048
  9. TRICOR [Concomitant]
     Indication: BLOOD CHOLESTEROL INCREASED
  10. TRAZODONE [Concomitant]
  11. LOVASTATIN [Concomitant]
  12. DOXYCYCLINE [Concomitant]
  13. TENIDAP SODIUM [Concomitant]
  14. TAMSULOSIN HCL [Concomitant]
  15. METFORMIN HCL [Concomitant]
  16. TRAMADOL [Concomitant]
  17. DICLOFENAC SODIUM [Concomitant]
  18. DEPAKOTE [Concomitant]
  19. ACTOS [Concomitant]
  20. BYETTA [Concomitant]
  21. RISPERDAL [Concomitant]
  22. WELCHOL [Concomitant]
  23. LOVAZA [Concomitant]

REACTIONS (26)
  - ABDOMINAL DISCOMFORT [None]
  - ABNORMAL DREAMS [None]
  - BLOOD CHOLESTEROL INCREASED [None]
  - BLOOD POTASSIUM DECREASED [None]
  - CYSTITIS [None]
  - DIABETES MELLITUS INADEQUATE CONTROL [None]
  - DIARRHOEA [None]
  - DRUG DEPENDENCE [None]
  - DRUG INTERACTION [None]
  - FATIGUE [None]
  - FEAR [None]
  - FEELING ABNORMAL [None]
  - HALLUCINATION, VISUAL [None]
  - HEADACHE [None]
  - KIDNEY INFECTION [None]
  - NAUSEA [None]
  - NERVOUSNESS [None]
  - ONYCHOMYCOSIS [None]
  - PARANOIA [None]
  - PHOTOPHOBIA [None]
  - PROSTATE INFECTION [None]
  - RENAL FAILURE [None]
  - TREMOR [None]
  - URINARY TRACT INFECTION [None]
  - VISUAL IMPAIRMENT [None]
  - VOMITING [None]
